FAERS Safety Report 10085023 (Version 1)
Quarter: 2014Q2

REPORT INFORMATION
  Report Type: Spontaneous
  Country: IT (occurrence: IT)
  Receive Date: 20140417
  Receipt Date: 20140417
  Transmission Date: 20141212
  Serious: Yes (Death, Hospitalization, Other)
  Sender: FDA-Public Use
  Company Number: IT-BAYER-2014-055157

PATIENT
  Age: 50 Year
  Sex: Male

DRUGS (3)
  1. SORAFENIB (RAF KINASE INHIBITOR) [Suspect]
     Indication: HEPATOCELLULAR CARCINOMA
     Dosage: 400 MG/DAY
  2. SORAFENIB (RAF KINASE INHIBITOR) [Suspect]
     Indication: HEPATOCELLULAR CARCINOMA
     Dosage: UNK
  3. EVEROLIMUS [Concomitant]
     Indication: IMMUNOSUPPRESSION

REACTIONS (3)
  - Diarrhoea [Fatal]
  - General physical condition normal [None]
  - Coma [None]
